FAERS Safety Report 10021277 (Version 1)
Quarter: 2014Q1

REPORT INFORMATION
  Report Type: Spontaneous
  Country: US (occurrence: US)
  Receive Date: 20140319
  Receipt Date: 20140319
  Transmission Date: 20141002
  Serious: No
  Sender: FDA-Public Use
  Company Number: US-B.I. PHARMACEUTICALS,INC./RIDGEFIELD-2014-BI-10832BP

PATIENT
  Sex: Female
  Weight: 86 kg

DRUGS (2)
  1. COMBIVENT [Suspect]
     Indication: ASTHMA
     Dosage: STRENGTH: 18 MCG / 103 MCG; DAILY DOSE: 72 MCG/412 MCG
     Route: 055
     Dates: start: 1996, end: 2014
  2. NEBULIZER [Concomitant]
     Route: 065

REACTIONS (1)
  - Off label use [Recovered/Resolved]
